FAERS Safety Report 15092356 (Version 1)
Quarter: 2018Q2

REPORT INFORMATION
  Report Type: Spontaneous
  Country: US (occurrence: US)
  Receive Date: 20180608
  Receipt Date: 20180608
  Transmission Date: 20180711
  Serious: Yes (Other)
  Sender: FDA-Public Use
  Company Number: None

PATIENT
  Age: 10 Year
  Sex: Male
  Weight: 24.75 kg

DRUGS (1)
  1. METHYLPHENIDATE 18 MG ER [Suspect]
     Active Substance: METHYLPHENIDATE
     Indication: ATTENTION DEFICIT/HYPERACTIVITY DISORDER
     Dosage: ?          QUANTITY:90 TABLET(S);?
     Route: 048

REACTIONS (7)
  - Drug ineffective [None]
  - Therapeutic response changed [None]
  - Product substitution issue [None]
  - Abnormal behaviour [None]
  - Throat clearing [None]
  - Cough [None]
  - Tic [None]

NARRATIVE: CASE EVENT DATE: 20171201
